FAERS Safety Report 15506594 (Version 1)
Quarter: 2018Q4

REPORT INFORMATION
  Report Type: Report from Study
  Country: IL (occurrence: IL)
  Receive Date: 20181016
  Receipt Date: 20181016
  Transmission Date: 20190205
  Serious: Yes (Other)
  Sender: FDA-Public Use
  Company Number: IL-IPSEN BIOPHARMACEUTICALS, INC.-2018-13125

PATIENT
  Sex: Female

DRUGS (5)
  1. SOMATULINE AUTOGEL 60MG [Suspect]
     Active Substance: LANREOTIDE ACETATE
     Indication: HYPERINSULINISM
     Dosage: 60 MG
     Route: 058
     Dates: start: 20151209
  2. SOMATULINE PR 30MG [Suspect]
     Active Substance: LANREOTIDE ACETATE
     Indication: OFF LABEL USE
  3. SOMATULINE PR 30MG [Suspect]
     Active Substance: LANREOTIDE ACETATE
     Indication: HYPERINSULINISM
     Dosage: 30 MG
     Route: 065
  4. SOMATULINE AUTOGEL 60MG [Suspect]
     Active Substance: LANREOTIDE ACETATE
     Indication: OFF LABEL USE
     Route: 058
  5. SOMATULINE AUTOGEL 60MG [Suspect]
     Active Substance: LANREOTIDE ACETATE
     Route: 058
     Dates: start: 20180709

REACTIONS (4)
  - Blood glucose decreased [Recovered/Resolved]
  - Off label use [Unknown]
  - Drug ineffective for unapproved indication [Unknown]
  - Inappropriate schedule of product administration [Unknown]
